FAERS Safety Report 5657874-6 (Version None)
Quarter: 2008Q1

REPORT INFORMATION
  Report Type: 
  Country: None (occurrence: None)
  Receive Date: 20080310
  Receipt Date: 20080228
  Transmission Date: 20080703
  Serious: No
  Sender: FDA-Public Use
  Company Number: PHBS2008RU02371

PATIENT
  Sex: Female

DRUGS (2)
  1. MIACALCIN [Suspect]
     Route: 045
  2. CALCIUM D3 [Concomitant]

REACTIONS (1)
  - THERAPEUTIC RESPONSE UNEXPECTED [None]
